FAERS Safety Report 19283603 (Version 3)
Quarter: 2021Q3

REPORT INFORMATION
  Report Type: Report from Study
  Country: US (occurrence: US)
  Receive Date: 20210521
  Receipt Date: 20210820
  Transmission Date: 20211014
  Serious: Yes (Hospitalization)
  Sender: FDA-Public Use
  Company Number: US-BIOVITRUM-2021US1929

PATIENT
  Age: 2 Year
  Sex: Male

DRUGS (1)
  1. KINERET [Suspect]
     Active Substance: ANAKINRA
     Indication: STILL^S DISEASE
     Route: 058
     Dates: start: 20180713

REACTIONS (16)
  - Dyspnoea [Unknown]
  - Pyrexia [Unknown]
  - Road traffic accident [Unknown]
  - Product dose omission issue [Unknown]
  - Skin abrasion [Unknown]
  - Pain [Unknown]
  - Illness [Unknown]
  - Gait disturbance [Unknown]
  - Injection site bruising [Unknown]
  - Injection site pain [Unknown]
  - Arthralgia [Unknown]
  - Off label use [Not Recovered/Not Resolved]
  - Lip discolouration [Unknown]
  - Herpes simplex [Unknown]
  - Asthenia [Unknown]
  - Weight decreased [Unknown]

NARRATIVE: CASE EVENT DATE: 20180713
